FAERS Safety Report 8245285-9 (Version None)
Quarter: 2012Q1

REPORT INFORMATION
  Report Type: 
  Country: None (occurrence: None)
  Receive Date: 20120329
  Receipt Date: 20120323
  Transmission Date: 20120608
  Serious: Yes (Other)
  Sender: FDA-Public Use
  Company Number: AU-BAYER-2012-028783

PATIENT
  Age: 23 Year
  Sex: Female

DRUGS (2)
  1. ESTELLE [Concomitant]
  2. CLOTRIMAZOLE [Suspect]
     Dosage: UNK
     Route: 067
     Dates: start: 20120321, end: 20120321

REACTIONS (1)
  - VAGINAL HAEMORRHAGE [None]
